FAERS Safety Report 16499747 (Version 1)
Quarter: 2019Q3

REPORT INFORMATION
  Report Type: Spontaneous
  Country: KR (occurrence: KR)
  Receive Date: 20190701
  Receipt Date: 20190701
  Transmission Date: 20191004
  Serious: Yes (Hospitalization)
  Sender: FDA-Public Use
  Company Number: KR-STRIDES ARCOLAB LIMITED-2019SP005545

PATIENT
  Age: 83 Year
  Sex: Male

DRUGS (3)
  1. TIGECYCLINE. [Suspect]
     Active Substance: TIGECYCLINE
     Indication: ACINETOBACTER INFECTION
     Dosage: 100 MG LOADING DOSE FOLLOWED BY 50 MG EVERY 12 HOURS
     Route: 042
  2. TIGECYCLINE. [Suspect]
     Active Substance: TIGECYCLINE
     Dosage: 50 MG, BID
     Route: 042
  3. METRONIDAZOLE. [Suspect]
     Active Substance: METRONIDAZOLE
     Indication: BACTERIAL INFECTION
     Dosage: UNK
     Route: 065

REACTIONS (4)
  - Klebsiella infection [Unknown]
  - Superinfection bacterial [Unknown]
  - Pseudomonas infection [Unknown]
  - Staphylococcal infection [Unknown]
